FAERS Safety Report 12541056 (Version 1)
Quarter: 2016Q3

REPORT INFORMATION
  Report Type: Spontaneous
  Country: FR (occurrence: FR)
  Receive Date: 20160708
  Receipt Date: 20160708
  Transmission Date: 20161109
  Serious: Yes (Hospitalization)
  Sender: FDA-Public Use
  Company Number: FR-SA-2016SA122023

PATIENT
  Age: 21 Year
  Sex: Female

DRUGS (6)
  1. CYMBALTA [Suspect]
     Active Substance: DULOXETINE HYDROCHLORIDE
     Dosage: STRENGTH 60 MG
     Route: 048
     Dates: start: 20160214, end: 20160214
  2. TERCIAN [Suspect]
     Active Substance: CYAMEMAZINE
     Route: 048
     Dates: start: 20160214, end: 20160214
  3. SERESTA [Suspect]
     Active Substance: OXAZEPAM
     Dosage: STRENGTH 50 MG
     Route: 048
     Dates: start: 20160214, end: 20160214
  4. LORAZEPAM. [Suspect]
     Active Substance: LORAZEPAM
     Route: 048
     Dates: start: 20160214, end: 20160214
  5. VALIUM [Suspect]
     Active Substance: DIAZEPAM
     Dosage: STRENGTH 10 MG
     Route: 048
     Dates: start: 20160214, end: 20160214
  6. STILNOX [Suspect]
     Active Substance: ZOLPIDEM TARTRATE
     Route: 048
     Dates: start: 20160214, end: 20160214

REACTIONS (2)
  - Toxicity to various agents [Recovering/Resolving]
  - Coma [Recovering/Resolving]

NARRATIVE: CASE EVENT DATE: 20160214
